FAERS Safety Report 8018189-4 (Version None)
Quarter: 2012Q1

REPORT INFORMATION
  Report Type: 
  Country: None (occurrence: None)
  Receive Date: 20120103
  Receipt Date: 20111223
  Transmission Date: 20120608
  Serious: Yes (Hospitalization)
  Sender: FDA-Public Use
  Company Number: IT-BRISTOL-MYERS SQUIBB COMPANY-16316358

PATIENT
  Age: 68 Year
  Sex: Male

DRUGS (2)
  1. COUMADIN [Suspect]
     Indication: CARDIAC OPERATION
     Dosage: 1DF= 1 AND 1/2 TABLETS OD
  2. ASPIRIN [Suspect]

REACTIONS (2)
  - POLYP [None]
  - HAEMATURIA [None]
